FAERS Safety Report 20297157 (Version 4)
Quarter: 2022Q1

REPORT INFORMATION
  Report Type: Spontaneous
  Country: DE (occurrence: DE)
  Receive Date: 20220105
  Receipt Date: 20220318
  Transmission Date: 20220423
  Serious: Yes (Death, Other)
  Sender: FDA-Public Use
  Company Number: DE-SA-SAC20211110000509

PATIENT
  Age: 48 Year
  Sex: Male

DRUGS (101)
  1. MELPHALAN [Suspect]
     Active Substance: MELPHALAN
     Indication: Product used for unknown indication
     Dosage: 230.78 MILLIGRAM, ONCE A DAY (TOTAL)
     Route: 042
     Dates: start: 20200113
  2. MELPHALAN [Suspect]
     Active Substance: MELPHALAN
     Dosage: 230.78 MILLIGRAM, ONCE A DAY (230.78 MG, QD)
     Route: 042
     Dates: start: 20201013
  3. CARMUSTINE [Suspect]
     Active Substance: CARMUSTINE
     Indication: Product used for unknown indication
     Dosage: 370.89 MILLIGRAM, ONCE A DAY
     Route: 042
     Dates: start: 20201013
  4. ENOXAPARIN SODIUM [Suspect]
     Active Substance: ENOXAPARIN SODIUM
     Indication: Prophylaxis
     Dosage: 60 MILLIGRAM, TWO TIMES A DAY (60 MG, BID)
     Route: 058
     Dates: start: 20200807
  5. CYTARABINE [Suspect]
     Active Substance: CYTARABINE
     Indication: Product used for unknown indication
     Dosage: 329.68 MILLIGRAM, TWO TIMES A DAY (329.68 MG, BID)
     Route: 042
     Dates: start: 20201013
  6. CYTARABINE [Suspect]
     Active Substance: CYTARABINE
     Dosage: 370.89 MILLIGRAM,
     Route: 042
     Dates: start: 20201013, end: 20201013
  7. ETOPOSIDE [Suspect]
     Active Substance: ETOPOSIDE
     Indication: Product used for unknown indication
     Dosage: 247.26 MILLIGRAM, TWO TIMES A DAY (247.26 MG, BID)
     Route: 042
     Dates: start: 20200113, end: 20201016
  8. ETOPOSIDE [Suspect]
     Active Substance: ETOPOSIDE
     Dosage: 247.26 MILLIGRAM, TWO TIMES A DAY (247.26 MG, BID)
     Route: 042
     Dates: start: 20201013
  9. ETOPOSIDE [Suspect]
     Active Substance: ETOPOSIDE
     Dosage: UNK
  10. MEPERIDINE HYDROCHLORIDE [Suspect]
     Active Substance: MEPERIDINE HYDROCHLORIDE
     Indication: Adverse event
     Dosage: 50 MILLIGRAM, (TOTAL, 1X)
     Route: 042
     Dates: start: 20210119, end: 20210119
  11. MEPERIDINE HYDROCHLORIDE [Suspect]
     Active Substance: MEPERIDINE HYDROCHLORIDE
     Dosage: 25 MILLIGRAM, (TOTAL, 1X)
     Route: 042
     Dates: start: 20210120, end: 20210120
  12. MEPERIDINE HYDROCHLORIDE [Suspect]
     Active Substance: MEPERIDINE HYDROCHLORIDE
     Dosage: UNK
     Route: 042
     Dates: start: 20210118, end: 20210118
  13. PLERIXAFOR [Suspect]
     Active Substance: PLERIXAFOR
     Indication: Product used for unknown indication
     Dosage: UNK
     Route: 065
  14. AMPHOTERICIN B [Concomitant]
     Active Substance: AMPHOTERICIN B
     Indication: Prophylaxis
     Dosage: UNK
     Route: 065
  15. AMPHOTERICIN B [Concomitant]
     Active Substance: AMPHOTERICIN B
     Dosage: 500 GRAM, FOUR TIMES/DAY (500 G, QID)
     Route: 048
  16. ATENATIV [Concomitant]
     Active Substance: ANTITHROMBIN III HUMAN
     Indication: Adverse event
     Dosage: 1.5 INTERNATIONAL UNIT
     Route: 042
     Dates: start: 20200901
  17. ATENATIV [Concomitant]
     Active Substance: ANTITHROMBIN III HUMAN
     Dosage: 1.5 INTERNATIONAL UNIT
     Route: 042
     Dates: start: 20200907
  18. CALCIUM [Concomitant]
     Active Substance: CALCIUM
     Indication: Adverse event
     Dosage: UNK
     Route: 042
  19. SULFAMETHOXAZOLE\TRIMETHOPRIM [Concomitant]
     Active Substance: SULFAMETHOXAZOLE\TRIMETHOPRIM
     Indication: Prophylaxis
     Dosage: UNK
     Route: 065
  20. SULFAMETHOXAZOLE\TRIMETHOPRIM [Concomitant]
     Active Substance: SULFAMETHOXAZOLE\TRIMETHOPRIM
     Dosage: 2880 MILLIGRAM, EVERY WEEK
     Route: 048
     Dates: end: 20210129
  21. SULFAMETHOXAZOLE\TRIMETHOPRIM [Concomitant]
     Active Substance: SULFAMETHOXAZOLE\TRIMETHOPRIM
     Dosage: 960 MILLIGRAM, EVERY WEEK
     Route: 048
  22. SULFAMETHOXAZOLE\TRIMETHOPRIM [Concomitant]
     Active Substance: SULFAMETHOXAZOLE\TRIMETHOPRIM
     Dosage: 960 MILLIGRAM, 3 WEEK
     Route: 048
  23. DEXAMETHASONE [Concomitant]
     Active Substance: DEXAMETHASONE
     Indication: Adverse event
     Dosage: 4 MILLIGRAM, ONCE A DAY (4 MG, QD)
     Route: 042
     Dates: start: 20210119, end: 20210119
  24. DEXAMETHASONE [Concomitant]
     Active Substance: DEXAMETHASONE
     Dosage: 40 MILLIGRAM (40 MG)
     Route: 048
     Dates: start: 20210122
  25. DIMENHYDRINATE [Concomitant]
     Active Substance: DIMENHYDRINATE
     Indication: Adverse event
     Dosage: UNK (TOTAL)
     Route: 042
  26. DIMENHYDRINATE [Concomitant]
     Active Substance: DIMENHYDRINATE
     Dosage: 4 MILLIGRAM (TOTAL 1 X)
     Route: 042
     Dates: start: 20210119
  27. ENTECAVIR [Concomitant]
     Active Substance: ENTECAVIR
     Indication: Premedication
     Dosage: 0.5 MILLIGRAM, ONCE A DAY (0.5 MG, QD)
     Route: 048
     Dates: end: 20210129
  28. HUMAN RED BLOOD CELL [Concomitant]
     Active Substance: HUMAN RED BLOOD CELL
     Indication: Adverse event
     Dosage: UNK
     Route: 042
  29. HUMAN RED BLOOD CELL [Concomitant]
     Active Substance: HUMAN RED BLOOD CELL
     Dosage: UNK UNK, 3 TIMES A DAY
     Route: 042
     Dates: start: 20210122, end: 20210122
  30. HUMAN RED BLOOD CELL [Concomitant]
     Active Substance: HUMAN RED BLOOD CELL
     Dosage: UNK UNK, TWO TIMES A DAY
     Route: 042
     Dates: start: 20210123, end: 20210123
  31. HUMAN RED BLOOD CELL [Concomitant]
     Active Substance: HUMAN RED BLOOD CELL
     Dosage: UNK UNK, 3 TIMES A DAY
     Route: 042
     Dates: start: 20210124, end: 20210124
  32. HUMAN RED BLOOD CELL [Concomitant]
     Active Substance: HUMAN RED BLOOD CELL
     Dosage: UNK UNK, 3 TIMES A DAY
     Route: 042
     Dates: start: 20210125, end: 20210125
  33. HUMAN RED BLOOD CELL [Concomitant]
     Active Substance: HUMAN RED BLOOD CELL
     Dosage: UNK UNK, TWO TIMES A DAY
     Route: 042
     Dates: start: 20210126, end: 20210126
  34. HUMAN RED BLOOD CELL [Concomitant]
     Active Substance: HUMAN RED BLOOD CELL
     Dosage: UNK UNK, TWO TIMES A DAY
     Route: 042
     Dates: start: 20210127, end: 20210127
  35. HUMAN RED BLOOD CELL [Concomitant]
     Active Substance: HUMAN RED BLOOD CELL
     Dosage: UNK UNK, EVERY FOUR HOUR
     Route: 042
     Dates: start: 20210128, end: 20210128
  36. HUMAN RED BLOOD CELL [Concomitant]
     Active Substance: HUMAN RED BLOOD CELL
     Dosage: UNK UNK, TWO TIMES A DAY
     Route: 042
     Dates: start: 20210129, end: 20210129
  37. ETOPOSIDE [Concomitant]
     Active Substance: ETOPOSIDE
     Indication: Adverse event
     Dosage: UNK
     Route: 042
     Dates: start: 20210122
  38. ETOPOSIDE [Concomitant]
     Active Substance: ETOPOSIDE
     Dosage: UNK, TOTAL
     Route: 042
     Dates: start: 20210122
  39. FIBRINOGEN [Concomitant]
     Active Substance: FIBRINOGEN HUMAN
     Indication: Adverse event
     Dosage: UNK, TOTAL
     Route: 065
  40. FIBRINOGEN [Concomitant]
     Active Substance: FIBRINOGEN HUMAN
     Dosage: UNK
     Route: 042
  41. FLUCONAZOLE [Concomitant]
     Active Substance: FLUCONAZOLE
     Indication: Product used for unknown indication
     Dosage: 100 MILLIGRAM, ONCE A DAY (100 MG, QD)
     Route: 048
     Dates: start: 20201027
  42. FLUCONAZOLE [Concomitant]
     Active Substance: FLUCONAZOLE
     Dosage: UNK (TOTAL)
     Route: 065
  43. FOLIC ACID [Concomitant]
     Active Substance: FOLIC ACID
     Indication: Prophylaxis
     Dosage: UNK
     Route: 065
  44. FOLIC ACID [Concomitant]
     Active Substance: FOLIC ACID
     Dosage: 0.4 MILLIGRAM, ONCE A DAY (0.4 MG, QD)
     Route: 048
  45. FOLIC ACID [Concomitant]
     Active Substance: FOLIC ACID
     Dosage: 4 MILLIGRAM, ONCE A DAY
     Route: 048
  46. FRESH FROZEN PLASMA [Concomitant]
     Active Substance: HUMAN PLASMA
     Indication: Adverse event
     Dosage: FOUR TIMES/DAY
     Route: 042
     Dates: start: 20210125, end: 20210125
  47. FRESH FROZEN PLASMA [Concomitant]
     Active Substance: HUMAN PLASMA
     Dosage: ONCE A DAY
     Route: 042
     Dates: start: 20210127, end: 20210127
  48. FRESH FROZEN PLASMA [Concomitant]
     Active Substance: HUMAN PLASMA
     Dosage: UNK
     Route: 042
  49. INNOHEP [Concomitant]
     Active Substance: TINZAPARIN SODIUM
     Indication: Prophylaxis
     Dosage: UNK
     Route: 065
  50. INNOHEP [Concomitant]
     Active Substance: TINZAPARIN SODIUM
     Dosage: 48000 INTERNATIONAL UNIT, EVERY WEEK (12000 IU, QIW)
     Route: 058
  51. INNOHEP [Concomitant]
     Active Substance: TINZAPARIN SODIUM
     Dosage: 12000 INTERNATIONAL UNIT, EVERY WEEK
     Route: 058
  52. INNOHEP [Concomitant]
     Active Substance: TINZAPARIN SODIUM
     Dosage: 12000 INTERNATIONAL UNIT, Q4W
     Route: 058
  53. KONAKION [Concomitant]
     Active Substance: PHYTONADIONE
     Indication: Adverse event
     Dosage: UNK
     Route: 042
     Dates: start: 20210118
  54. KONAKION [Concomitant]
     Active Substance: PHYTONADIONE
     Dosage: UNK
     Route: 065
  55. LINEZOLID [Concomitant]
     Active Substance: LINEZOLID
     Indication: Adverse event
     Dosage: UNK
     Route: 042
     Dates: start: 20210128
  56. LINEZOLID [Concomitant]
     Active Substance: LINEZOLID
     Dosage: UNK
     Route: 065
  57. MEROPENEM [Concomitant]
     Active Substance: MEROPENEM
     Indication: Adverse event
     Dosage: UNK
     Route: 042
     Dates: start: 20201026, end: 20201029
  58. MEROPENEM [Concomitant]
     Active Substance: MEROPENEM
     Dosage: UNK
     Route: 042
     Dates: start: 20210115, end: 20210129
  59. METOCLOPRAMIDE [Concomitant]
     Active Substance: METOCLOPRAMIDE
     Indication: Product used for unknown indication
     Dosage: UNK
     Route: 065
  60. METOCLOPRAMIDE [Concomitant]
     Active Substance: METOCLOPRAMIDE
     Dosage: UNK
     Route: 048
  61. MSI [Concomitant]
     Active Substance: MORPHINE SULFATE
     Indication: Adverse event
     Dosage: 2.5 MILLIGRAM (2.5 MG INFREQUENT)
     Route: 058
     Dates: start: 20210118
  62. NOREPINEPHRINE [Concomitant]
     Active Substance: NOREPINEPHRINE
     Indication: Adverse event
     Dosage: UNK
     Route: 042
  63. NOREPINEPHRINE [Concomitant]
     Active Substance: NOREPINEPHRINE
     Dosage: UNK, ONCE A DAY
     Route: 042
     Dates: start: 20210122, end: 20210129
  64. OXYGEN [Concomitant]
     Active Substance: OXYGEN
     Indication: Adverse event
     Dosage: 2000 MILLILITER (INFREQUENT)
     Route: 055
     Dates: start: 20210118
  65. PANTOPRAZOLE [Concomitant]
     Active Substance: PANTOPRAZOLE
     Indication: Prophylaxis
     Dosage: 40 UNK
     Route: 048
  66. PANTOPRAZOLE [Concomitant]
     Active Substance: PANTOPRAZOLE
     Dosage: 40 MILLIGRAM, ONCE A DAY
     Route: 048
     Dates: end: 20210129
  67. ACETAMINOPHEN [Concomitant]
     Active Substance: ACETAMINOPHEN
     Indication: Adverse event
     Dosage: UNK
     Route: 065
  68. ACETAMINOPHEN [Concomitant]
     Active Substance: ACETAMINOPHEN
     Dosage: 1 GRAM (INFREQUENT)
     Route: 048
     Dates: start: 20210118
  69. PIPERACILLIN [Concomitant]
     Active Substance: PIPERACILLIN
     Indication: Adverse event
     Dosage: 4 GRAM, 3 TIMES A DAY (4 G, TID)
     Route: 042
     Dates: start: 20201022, end: 20201026
  70. PIPERACILLIN [Concomitant]
     Active Substance: PIPERACILLIN
     Dosage: UNK
     Route: 042
     Dates: start: 20210113, end: 20210115
  71. PLATELETS [Concomitant]
     Active Substance: HUMAN PLATELET, ALLOGENIC
     Indication: Adverse event
     Dosage: UNK (TOTAL)
     Route: 042
     Dates: start: 20201023, end: 20201023
  72. PLATELETS [Concomitant]
     Active Substance: HUMAN PLATELET, ALLOGENIC
     Dosage: UNK (TOTAL 1 X)
     Route: 042
     Dates: start: 20201025, end: 20201025
  73. PLATELETS [Concomitant]
     Active Substance: HUMAN PLATELET, ALLOGENIC
     Dosage: UNK (TOTAL 1 X)
     Route: 042
     Dates: start: 20201027, end: 20201027
  74. PLATELETS [Concomitant]
     Active Substance: HUMAN PLATELET, ALLOGENIC
     Dosage: UNK (TOTAL 1 X)
     Route: 042
     Dates: start: 20210113, end: 20210114
  75. PLATELETS [Concomitant]
     Active Substance: HUMAN PLATELET, ALLOGENIC
     Dosage: UNK, TWO TIMES A DAY
     Route: 042
     Dates: start: 20210115, end: 20210115
  76. PLATELETS [Concomitant]
     Active Substance: HUMAN PLATELET, ALLOGENIC
     Dosage: UNK, TWO TIMES A DAY
     Route: 042
     Dates: start: 20210124, end: 20210124
  77. PLATELETS [Concomitant]
     Active Substance: HUMAN PLATELET, ALLOGENIC
     Dosage: UNK (TOTAL)
     Route: 042
     Dates: start: 20210125, end: 20210126
  78. PLATELETS [Concomitant]
     Active Substance: HUMAN PLATELET, ALLOGENIC
     Dosage: UNK, 3 TIMES A DAY
     Route: 042
     Dates: start: 20210127, end: 20210127
  79. PLATELETS [Concomitant]
     Active Substance: HUMAN PLATELET, ALLOGENIC
     Dosage: UNK (TOTAL 1 X)
     Route: 042
     Dates: start: 20210128, end: 20210129
  80. PLATELETS [Concomitant]
     Active Substance: HUMAN PLATELET, ALLOGENIC
     Dosage: UNK (TOTAL 1 X)
     Route: 042
     Dates: start: 20210119, end: 20210119
  81. PREDNISOLONE [Concomitant]
     Active Substance: PREDNISOLONE
     Indication: Adverse event
     Dosage: 100 MILLIGRAM
     Route: 048
  82. PREDNISOLONE [Concomitant]
     Active Substance: PREDNISOLONE
     Dosage: 100 MILLIGRAM (TOTAL, 1X)
     Route: 048
     Dates: start: 20210119, end: 20210119
  83. PROTHROMBIN [Concomitant]
     Active Substance: PROTHROMBIN
     Indication: Adverse event
     Dosage: UNK
     Route: 042
  84. PROTHROMBIN [Concomitant]
     Active Substance: PROTHROMBIN
     Dosage: UNK
     Route: 042
  85. TAZOBACTAM [Concomitant]
     Active Substance: TAZOBACTAM
     Indication: Product used for unknown indication
     Dosage: 0.5 GRAM
     Route: 042
     Dates: start: 20201022, end: 20201026
  86. TAZOBACTAM [Concomitant]
     Active Substance: TAZOBACTAM
     Dosage: UNK
     Route: 042
     Dates: start: 20210113, end: 20210115
  87. TRANEXAMIC ACID [Concomitant]
     Active Substance: TRANEXAMIC ACID
     Indication: Adverse event
     Dosage: UNK
     Route: 042
  88. TRANEXAMIC ACID [Concomitant]
     Active Substance: TRANEXAMIC ACID
     Dosage: 1 GRAM, 3 TIMES A DAY
     Route: 042
     Dates: start: 20210119
  89. VALACYCLOVIR HYDROCHLORIDE [Concomitant]
     Active Substance: VALACYCLOVIR HYDROCHLORIDE
     Indication: Prophylaxis
     Dosage: 500 MILLIGRAM, TWO TIMES A DAY (500 MG, BID)
     Route: 048
  90. VANCOMYCIN [Concomitant]
     Active Substance: VANCOMYCIN
     Indication: Adverse event
     Dosage: UNK
     Route: 042
     Dates: start: 20210122
  91. VANCOMYCIN [Concomitant]
     Active Substance: VANCOMYCIN
     Dosage: UNK
     Route: 042
     Dates: start: 20210127
  92. HUMAN RED BLOOD CELL [Concomitant]
     Active Substance: HUMAN RED BLOOD CELL
     Indication: Adverse event
     Dosage: UNK
     Route: 042
  93. HUMAN RED BLOOD CELL [Concomitant]
     Active Substance: HUMAN RED BLOOD CELL
     Dosage: UNK, 3 TIMES A DAY, (UNK UNK, TID )
     Route: 065
     Dates: start: 20210122, end: 20210122
  94. HUMAN RED BLOOD CELL [Concomitant]
     Active Substance: HUMAN RED BLOOD CELL
     Dosage: UNK, ONCE A DAY, (UNK UNK, 5ID )
     Route: 042
     Dates: start: 20210127, end: 20210127
  95. HUMAN RED BLOOD CELL [Concomitant]
     Active Substance: HUMAN RED BLOOD CELL
     Dosage: UNK, TWO TIMES A DAY, (UNK,UNK BID)
     Route: 042
     Dates: start: 20210126, end: 20210126
  96. HUMAN RED BLOOD CELL [Concomitant]
     Active Substance: HUMAN RED BLOOD CELL
     Dosage: UNK, 3 TIMES A DAY, (UNK UNK, TID
     Route: 042
     Dates: start: 20210125, end: 20210125
  97. HUMAN RED BLOOD CELL [Concomitant]
     Active Substance: HUMAN RED BLOOD CELL
     Dosage: UNK, TWO TIMES A DAY
     Route: 042
     Dates: start: 20210123, end: 20210123
  98. HUMAN RED BLOOD CELL [Concomitant]
     Active Substance: HUMAN RED BLOOD CELL
     Dosage: UNK, ( 6ID )
     Route: 042
     Dates: start: 20210128, end: 20210128
  99. HUMAN RED BLOOD CELL [Concomitant]
     Active Substance: HUMAN RED BLOOD CELL
     Dosage: UNK, TWO TIMES A DAY
     Route: 042
     Dates: start: 20210129, end: 20210129
  100. HUMAN RED BLOOD CELL [Concomitant]
     Active Substance: HUMAN RED BLOOD CELL
     Dosage: UNK, FOUR TIMES/DAY, (UNK UNK, QID )
     Route: 042
     Dates: start: 20210124, end: 20210124
  101. SULFAMETHOXAZOLE\TRIMETHOPRIM [Concomitant]
     Active Substance: SULFAMETHOXAZOLE\TRIMETHOPRIM
     Indication: Prophylaxis
     Dosage: 960 MILLIGRAM, 3 WEEK
     Route: 048

REACTIONS (9)
  - Haemophagocytic lymphohistiocytosis [Fatal]
  - Leukopenia [Not Recovered/Not Resolved]
  - Febrile neutropenia [Recovered/Resolved]
  - Escherichia infection [Not Recovered/Not Resolved]
  - Hypotension [Unknown]
  - Pyrexia [Not Recovered/Not Resolved]
  - Diarrhoea [Recovered/Resolved]
  - Frequent bowel movements [Unknown]
  - Body temperature increased [Unknown]

NARRATIVE: CASE EVENT DATE: 20201022
